FAERS Safety Report 11257708 (Version 1)
Quarter: 2015Q3

REPORT INFORMATION
  Report Type: Report from Study
  Country: IN (occurrence: IN)
  Receive Date: 20150710
  Receipt Date: 20150710
  Transmission Date: 20151125
  Serious: Yes (Death)
  Sender: FDA-Public Use
  Company Number: IN-ROCHE-1603960

PATIENT
  Age: 40 Year
  Sex: Male

DRUGS (6)
  1. SULFAMETHOXAZOLE/TRIMETHOPRIM [Concomitant]
     Active Substance: SULFAMETHOXAZOLE\TRIMETHOPRIM
     Dosage: ONCE A DAY
     Route: 048
     Dates: start: 20150409
  2. FLUCONAZOLE. [Concomitant]
     Active Substance: FLUCONAZOLE
     Dosage: 50MG, ONCE A DAY
     Route: 048
     Dates: start: 20150409
  3. RANITIDINE [Concomitant]
     Active Substance: RANITIDINE\RANITIDINE HYDROCHLORIDE
     Dosage: 150MG, TWO TIMES A DAY
     Route: 048
     Dates: start: 20150409
  4. TACROLIMUS. [Concomitant]
     Active Substance: TACROLIMUS
     Dosage: 3-2.5 MG
     Route: 048
     Dates: start: 20150409
  5. CELLCEPT [Suspect]
     Active Substance: MYCOPHENOLATE MOFETIL\MYCOPHENOLATE MOFETIL HYDROCHLORIDE
     Indication: PROPHYLAXIS AGAINST TRANSPLANT REJECTION
     Dosage: 500MG, TWO TIMES A DAY
     Route: 048
     Dates: start: 20150319
  6. PREDNISOLONE. [Concomitant]
     Active Substance: PREDNISOLONE
     Dosage: 20MG, ONCE A DAY
     Route: 048
     Dates: start: 20150409

REACTIONS (2)
  - Myocardial infarction [Fatal]
  - Immunosuppressant drug level increased [Fatal]

NARRATIVE: CASE EVENT DATE: 20150615
